FAERS Safety Report 7114650-5 (Version None)
Quarter: 2010Q4

REPORT INFORMATION
  Report Type: 
  Country: None (occurrence: None)
  Receive Date: 20101122
  Receipt Date: 20101116
  Transmission Date: 20110411
  Serious: Yes (Death, Hospitalization, Other)
  Sender: FDA-Public Use
  Company Number: US-BIOGENIDEC-2010BI033088

PATIENT
  Age: 50 Year
  Sex: Male

DRUGS (1)
  1. TYSABRI [Suspect]
     Indication: CROHN'S DISEASE
     Route: 042
     Dates: start: 20100420, end: 20100803

REACTIONS (6)
  - DISSEMINATED INTRAVASCULAR COAGULATION [None]
  - ENTEROCOCCAL SEPSIS [None]
  - PNEUMONIA [None]
  - PULMONARY EMBOLISM [None]
  - SEPTIC SHOCK [None]
  - SYSTEMIC CANDIDA [None]
